FAERS Safety Report 6433956-6 (Version None)
Quarter: 2009Q4

REPORT INFORMATION
  Report Type: 
  Country: None (occurrence: None)
  Receive Date: 20091106
  Receipt Date: 20091106
  Transmission Date: 20100525
  Serious: Yes (Death)
  Sender: FDA-Public Use
  Company Number: None

PATIENT
  Age: 97 Year
  Sex: Male
  Weight: 65.8 kg

DRUGS (9)
  1. ABILIFY [Suspect]
     Indication: DEMENTIA
     Dosage: 5MG PO QD
     Route: 048
     Dates: start: 20090623
  2. ABILIFY [Suspect]
     Indication: PSYCHOTIC DISORDER
     Dosage: 5MG PO QD
     Route: 048
     Dates: start: 20090623
  3. LOTENSIN [Concomitant]
  4. LOPRESSOR [Concomitant]
  5. AVODART [Concomitant]
  6. NORVASC [Concomitant]
  7. ASPIRIN [Concomitant]
  8. SYNTHROID [Concomitant]
  9. XALATAN [Concomitant]

REACTIONS (1)
  - DEATH [None]
